FAERS Safety Report 20830149 (Version 1)
Quarter: 2022Q2

REPORT INFORMATION
  Report Type: Spontaneous
  Country: AU (occurrence: AU)
  Receive Date: 20220514
  Receipt Date: 20220514
  Transmission Date: 20220720
  Serious: Yes (Other)
  Sender: FDA-Public Use
  Company Number: AU-TEVA-2022-AU-2034611

PATIENT

DRUGS (8)
  1. AJOVY [Suspect]
     Active Substance: FREMANEZUMAB-VFRM
     Route: 065
  2. Esitralopram [Concomitant]
  3. RABEPRAZOLE [Concomitant]
     Active Substance: RABEPRAZOLE
  4. CANDESARTAN [Concomitant]
     Active Substance: CANDESARTAN
  5. GILENYA [Concomitant]
     Active Substance: FINGOLIMOD HYDROCHLORIDE
  6. SEROQUEL [Concomitant]
     Active Substance: QUETIAPINE FUMARATE
  7. VALIUM [Concomitant]
     Active Substance: DIAZEPAM
  8. LORAZEPAM [Concomitant]
     Active Substance: LORAZEPAM

REACTIONS (23)
  - Multiple sclerosis [Not Recovered/Not Resolved]
  - Hemiplegic migraine [Not Recovered/Not Resolved]
  - Migraine [Not Recovered/Not Resolved]
  - Speech disorder [Not Recovered/Not Resolved]
  - Eating disorder [Not Recovered/Not Resolved]
  - Paraesthesia [Not Recovered/Not Resolved]
  - Hypoaesthesia [Not Recovered/Not Resolved]
  - Abdominal distension [Not Recovered/Not Resolved]
  - Abdominal pain upper [Not Recovered/Not Resolved]
  - Pain [Not Recovered/Not Resolved]
  - Peripheral coldness [Not Recovered/Not Resolved]
  - Menstruation irregular [Not Recovered/Not Resolved]
  - Fibrocystic breast disease [Not Recovered/Not Resolved]
  - Breast pain [Not Recovered/Not Resolved]
  - Dizziness [Not Recovered/Not Resolved]
  - Tinnitus [Not Recovered/Not Resolved]
  - Anxiety [Not Recovered/Not Resolved]
  - Heart rate increased [Not Recovered/Not Resolved]
  - Hot flush [Not Recovered/Not Resolved]
  - Depression [Not Recovered/Not Resolved]
  - Crying [Not Recovered/Not Resolved]
  - Malaise [Not Recovered/Not Resolved]
  - Thinking abnormal [Not Recovered/Not Resolved]
